FAERS Safety Report 16097491 (Version 1)
Quarter: 2019Q1

REPORT INFORMATION
  Report Type: Other
  Country: FR (occurrence: FR)
  Receive Date: 20190320
  Receipt Date: 20190320
  Transmission Date: 20190418
  Serious: Yes (Hospitalization)
  Sender: FDA-Public Use
  Company Number: FR-GENUS_LIFESCIENCES-USA-POI0580201900227

PATIENT
  Age: 26 Year
  Sex: Male

DRUGS (1)
  1. GOPRELTO [Suspect]
     Active Substance: COCAINE HYDROCHLORIDE
     Indication: PRODUCT USED FOR UNKNOWN INDICATION
     Dates: end: 2017

REACTIONS (2)
  - Pneumomediastinum [Recovered/Resolved]
  - Drug abuse [Recovered/Resolved]

NARRATIVE: CASE EVENT DATE: 2017
